FAERS Safety Report 19743946 (Version 1)
Quarter: 2021Q3

REPORT INFORMATION
  Report Type: Spontaneous
  Country: US (occurrence: US)
  Receive Date: 20210823
  Receipt Date: 20210823
  Transmission Date: 20211014
  Serious: No
  Sender: FDA-Public Use
  Company Number: None

PATIENT
  Age: 82 Year
  Sex: Female
  Weight: 48.15 kg

DRUGS (7)
  1. CHOLECALCIFEROL [Concomitant]
     Active Substance: CHOLECALCIFEROL
  2. CAPECITABINE. [Suspect]
     Active Substance: CAPECITABINE
     Indication: COLON CANCER
     Dosage: ?          OTHER FREQUENCY:BID FOR 14/21DAYS;?
     Route: 048
     Dates: start: 20210726
  3. ATIVAN [Concomitant]
     Active Substance: LORAZEPAM
  4. IPRATROPIUM [Concomitant]
     Active Substance: IPRATROPIUM
  5. ZESTORETIC [Concomitant]
     Active Substance: HYDROCHLOROTHIAZIDE\LISINOPRIL
  6. CAPECITABINE. [Suspect]
     Active Substance: CAPECITABINE
     Indication: COLON CANCER
     Dosage: ?          OTHER FREQUENCY:BID 14/21 DAYS;?
     Route: 048
     Dates: start: 20210726
  7. TRAVATAN Z [Concomitant]
     Active Substance: TRAVOPROST

REACTIONS (2)
  - Decreased appetite [None]
  - Dizziness [None]

NARRATIVE: CASE EVENT DATE: 20210823
